FAERS Safety Report 20195004 (Version 1)
Quarter: 2021Q4

REPORT INFORMATION
  Report Type: Spontaneous
  Country: US (occurrence: None)
  Receive Date: 20211216
  Receipt Date: 20211216
  Transmission Date: 20220303
  Serious: Yes (Hospitalization)
  Sender: FDA-Public Use
  Company Number: None

PATIENT
  Age: 17 Year
  Sex: Female
  Weight: 62.3 kg

DRUGS (1)
  1. CEFDINIR [Suspect]
     Active Substance: CEFDINIR
     Indication: Pharyngitis streptococcal
     Dosage: FREQUENCY : TWICE A DAY;?
     Route: 048
     Dates: start: 20211211, end: 20211214

REACTIONS (7)
  - Blood bilirubin increased [None]
  - Abdominal pain [None]
  - Jaundice [None]
  - Chromaturia [None]
  - Fatigue [None]
  - Decreased appetite [None]
  - Drug hypersensitivity [None]

NARRATIVE: CASE EVENT DATE: 20211214
